FAERS Safety Report 9306283 (Version 1)
Quarter: 2013Q2

REPORT INFORMATION
  Report Type: Spontaneous
  Country: IL (occurrence: IL)
  Receive Date: 20130523
  Receipt Date: 20130523
  Transmission Date: 20140414
  Serious: Yes (Other)
  Sender: FDA-Public Use
  Company Number: IL-ROXANE LABORATORIES, INC.-2013-RO-00815RO

PATIENT
  Age: 73 Year
  Sex: Female

DRUGS (9)
  1. PREDNISONE [Suspect]
     Dosage: 20 MG
  2. ALENDRONATE [Suspect]
     Dosage: 10 MG
  3. ALBUTEROL [Concomitant]
     Route: 055
  4. OMEPRAZOLE [Concomitant]
     Dosage: 20 MG
  5. SIMVASTATIN [Concomitant]
     Dosage: 10 MG
  6. HYDROXYL ETHYLCELLULOSE [Concomitant]
     Route: 031
  7. LANOLIN OIL [Concomitant]
     Route: 031
  8. VITAMIN D [Concomitant]
     Dosage: 600 U
  9. CALCIUM [Concomitant]
     Dosage: 1200 MG

REACTIONS (1)
  - Osteonecrosis of jaw [Recovered/Resolved]
